FAERS Safety Report 4981574-9 (Version None)
Quarter: 2006Q2

REPORT INFORMATION
  Report Type: 
  Country: None (occurrence: None)
  Receive Date: 20060425
  Receipt Date: 20060414
  Transmission Date: 20061013
  Serious: Yes (Other)
  Sender: FDA-Public Use
  Company Number: PHEH2006US04980

PATIENT
  Age: 40 Year
  Sex: Male

DRUGS (5)
  1. TEGRETOL [Suspect]
     Indication: NEUROPATHY PERIPHERAL
     Dosage: UNK, UNK
  2. FLONASE [Concomitant]
  3. ALLEGRA [Concomitant]
  4. CARBAMAZEPINE [Suspect]
     Dosage: 200MG, 1-2 TABS, QD
  5. LISINOPRIL [Suspect]

REACTIONS (15)
  - ABDOMINAL PAIN [None]
  - AMNESIA [None]
  - ANGIONEUROTIC OEDEMA [None]
  - ARTHRALGIA [None]
  - DEPRESSION [None]
  - DIARRHOEA [None]
  - DIZZINESS [None]
  - DYSPNOEA [None]
  - HYPOACUSIS [None]
  - NEURALGIA [None]
  - OEDEMA PERIPHERAL [None]
  - SOMNOLENCE [None]
  - SPERM COUNT ZERO [None]
  - TINNITUS [None]
  - VISUAL ACUITY REDUCED [None]
